FAERS Safety Report 9552068 (Version 1)
Quarter: 2013Q3

REPORT INFORMATION
  Report Type: Spontaneous
  Country: US (occurrence: None)
  Receive Date: 20130923
  Receipt Date: 20130923
  Transmission Date: 20140515
  Serious: Yes (Hospitalization)
  Sender: FDA-Public Use
  Company Number: None

PATIENT
  Age: 75 Year
  Sex: Male
  Weight: 91.2 kg

DRUGS (1)
  1. CAMPATH [Suspect]

REACTIONS (2)
  - Lymphopenia [None]
  - Thrombocytopenia [None]
